FAERS Safety Report 4473289-0 (Version None)
Quarter: 2004Q4

REPORT INFORMATION
  Report Type: 
  Country: None (occurrence: None)
  Receive Date: 20041013
  Receipt Date: 20041003
  Transmission Date: 20050328
  Serious: Yes (Hospitalization)
  Sender: FDA-Public Use
  Company Number: PHEH2004US10705

PATIENT
  Sex: Male

DRUGS (1)
  1. DIOVAN HCT [Suspect]
     Dosage: 160/325  MG
     Route: 048
     Dates: start: 20040901

REACTIONS (6)
  - BLOOD PRESSURE INCREASED [None]
  - CHEST PAIN [None]
  - HEADACHE [None]
  - HYPOAESTHESIA [None]
  - LYMPH NODE PAIN [None]
  - PHARYNGOLARYNGEAL PAIN [None]
